FAERS Safety Report 8046637-2 (Version None)
Quarter: 2012Q1

REPORT INFORMATION
  Report Type: 
  Country: None (occurrence: None)
  Receive Date: 20120114
  Receipt Date: 20120109
  Transmission Date: 20120608
  Serious: No
  Sender: FDA-Public Use
  Company Number: US-BAYER-2012-003432

PATIENT

DRUGS (3)
  1. NAPROXEN [Concomitant]
     Dosage: 2 UNK, UNK
  2. ALEVE (CAPLET) [Suspect]
     Indication: MIGRAINE
     Dosage: 3 UNK, UNK
  3. ACETAMINOPHEN [Concomitant]
     Dosage: 2 UNK, UNK

REACTIONS (1)
  - MIGRAINE [None]
